FAERS Safety Report 5230159-8 (Version None)
Quarter: 2007Q1

REPORT INFORMATION
  Report Type: 
  Country: None (occurrence: None)
  Receive Date: 20070206
  Receipt Date: 20060912
  Transmission Date: 20070707
  Serious: No
  Sender: FDA-Public Use
  Company Number: US-GLAXOSMITHKLINE-A0619895A

PATIENT
  Age: 52 Year
  Sex: Female

DRUGS (6)
  1. PAXIL CR [Suspect]
     Indication: DEPRESSION
     Dosage: 37.5MG PER DAY
     Route: 048
     Dates: start: 19980101
  2. LIPITOR [Concomitant]
  3. UNKNOWN MEDICATION [Concomitant]
  4. LOPRESSOR [Concomitant]
  5. HYDROCHLOROTHIAZIDE [Concomitant]
  6. SINGULAIR [Concomitant]

REACTIONS (6)
  - FEELING JITTERY [None]
  - HYPERSOMNIA [None]
  - INSOMNIA [None]
  - MOOD SWINGS [None]
  - RESTLESSNESS [None]
  - VISION BLURRED [None]
